FAERS Safety Report 11671998 (Version 1)
Quarter: 2015Q4

REPORT INFORMATION
  Report Type: Spontaneous
  Country: US (occurrence: None)
  Receive Date: 20151027
  Receipt Date: 20151027
  Transmission Date: 20160304
  Serious: Yes (Hospitalization)
  Sender: FDA-Public Use
  Company Number: None

PATIENT
  Age: 51 Year
  Sex: Male
  Weight: 54 kg

DRUGS (3)
  1. CISPLATIN. [Suspect]
     Active Substance: CISPLATIN
     Dates: end: 20151019
  2. DOXORUBICIN HYDROCHLORIDE. [Suspect]
     Active Substance: DOXORUBICIN HYDROCHLORIDE
     Dates: end: 20151019
  3. VINBLASTINE SULFATE. [Suspect]
     Active Substance: VINBLASTINE SULFATE
     Dates: end: 20151019

REACTIONS (8)
  - Hypothermia [None]
  - Hypertension [None]
  - Hypotension [None]
  - Upper gastrointestinal haemorrhage [None]
  - Anaemia [None]
  - Clostridium test positive [None]
  - Tachycardia [None]
  - Hypovolaemic shock [None]

NARRATIVE: CASE EVENT DATE: 20151024
